FAERS Safety Report 7867526 (Version 7)
Quarter: 2012Q4

REPORT INFORMATION
  Report Type: 
  Country: US (occurrence: US)
  Receive Date: 20110323
  Receipt Date: 20120905
  Transmission Date: 20130627
  Serious: Yes (Hospitalization, Other)
  Sender: FDA-Public Use
  Company Number: US-BAYER-2011-023914

PATIENT
  Age: 25 Year
  Sex: Female
  Weight: 91 kg

DRUGS (1)
  1. YAZ [Suspect]
     Dosage: UNK
     Route: 048
     Dates: start: 20080715, end: 200906

REACTIONS (9)
  - Brain stem stroke [Unknown]
  - Hemiplegic migraine [None]
  - Mental disorder [None]
  - Migraine [Unknown]
  - Depression [None]
  - Anxiety [None]
  - Injury [None]
  - Pain [Unknown]
  - General physical health deterioration [Unknown]
